FAERS Safety Report 16377875 (Version 1)
Quarter: 2019Q2

REPORT INFORMATION
  Report Type: Spontaneous
  Country: US (occurrence: US)
  Receive Date: 20190408
  Receipt Date: 20190408
  Transmission Date: 20190711
  Serious: Yes (Hospitalization)
  Sender: FDA-Public Use
  Company Number: None

PATIENT
  Sex: Male

DRUGS (18)
  1. SILDENAFIL. [Suspect]
     Active Substance: SILDENAFIL
     Indication: PULMONARY ARTERIAL HYPERTENSION
     Route: 048
     Dates: start: 20160123
  2. ATORVASTATIN TAB 10MG [Concomitant]
  3. MAGNESIUM-OX TAB 400MG [Concomitant]
  4. METOPROL TAR TAB 25MG [Concomitant]
  5. ASPIRIN LOW TAB 81MG EC [Concomitant]
  6. FUROSEMIDE TAB 20MG [Concomitant]
  7. MULTI-VITAMN TAB [Concomitant]
  8. FOLIC ACID TAB 1MG [Concomitant]
  9. TACROLIMUS CAP 0.5MG [Concomitant]
     Active Substance: TACROLIMUS
  10. CITALOPRAM TAB 40MG [Concomitant]
  11. OMEPRAZOLE CAP 20MG [Concomitant]
     Active Substance: OMEPRAZOLE
  12. LANTUS INJ 100/ML [Concomitant]
  13. GABAPENTIN CAP 300MG [Concomitant]
     Active Substance: GABAPENTIN
  14. HUMALOG [Concomitant]
     Active Substance: INSULIN LISPRO
  15. WELLBUTRIN TAB 150MG SR [Concomitant]
  16. AMLODIPINE TAB 10MG [Concomitant]
  17. CALCIUM TAB 600MG [Concomitant]
  18. VITAMIN D3 CAP 1000UNIT [Concomitant]

REACTIONS (1)
  - Localised infection [None]
